FAERS Safety Report 18826049 (Version 1)
Quarter: 2021Q1

REPORT INFORMATION
  Report Type: Spontaneous
  Country: US (occurrence: US)
  Receive Date: 20210201
  Receipt Date: 20210201
  Transmission Date: 20210419
  Serious: Yes (Hospitalization, Other)
  Sender: FDA-Public Use
  Company Number: US-ABBVIE-20K-163-3270573-00

PATIENT
  Age: 54 Year
  Sex: Female
  Weight: 47.67 kg

DRUGS (3)
  1. TYMLOS [Concomitant]
     Active Substance: ABALOPARATIDE
     Indication: OSTEOPOROSIS
  2. HUMIRA [Suspect]
     Active Substance: ADALIMUMAB
     Indication: CROHN^S DISEASE
     Route: 058
     Dates: start: 2014
  3. PROLIA [Concomitant]
     Active Substance: DENOSUMAB
     Indication: PRODUCT USED FOR UNKNOWN INDICATION

REACTIONS (7)
  - Rib fracture [Recovering/Resolving]
  - Incorrect dose administered [Recovered/Resolved]
  - Fall [Recovered/Resolved]
  - Injection site erythema [Recovering/Resolving]
  - Device issue [Recovered/Resolved]
  - Pancreatitis acute [Recovered/Resolved]
  - Injection site haemorrhage [Recovered/Resolved]

NARRATIVE: CASE EVENT DATE: 20200105
